FAERS Safety Report 7074438-0 (Version None)
Quarter: 2010Q4

REPORT INFORMATION
  Report Type: 
  Country: None (occurrence: None)
  Receive Date: 20101021
  Receipt Date: 20101006
  Transmission Date: 20110411
  Serious: Yes (Hospitalization)
  Sender: FDA-Public Use
  Company Number: 019125

PATIENT
  Sex: Female
  Weight: 44.9061 kg

DRUGS (7)
  1. CIMZIA [Suspect]
     Indication: CROHN'S DISEASE
     Dosage: (400 MG 1X/2 WEEKS SUBCUTANEOUS)
     Route: 058
     Dates: start: 20091001, end: 20100101
  2. IMURAN [Suspect]
     Indication: CROHN'S DISEASE
     Dosage: (100 MG QD ORAL)
     Route: 048
     Dates: start: 20100101, end: 20100901
  3. PENTASA [Concomitant]
  4. ENTOCORT EC [Concomitant]
  5. DEXLANSOPRAZOLE [Concomitant]
  6. DIFLUCAN [Concomitant]
  7. IMURAN [Concomitant]

REACTIONS (13)
  - ABDOMINAL PAIN UPPER [None]
  - CONDITION AGGRAVATED [None]
  - CROHN'S DISEASE [None]
  - DECREASED APPETITE [None]
  - DIARRHOEA [None]
  - FATIGUE [None]
  - HEADACHE [None]
  - NAUSEA [None]
  - ORAL CANDIDIASIS [None]
  - PYREXIA [None]
  - RECTAL ABSCESS [None]
  - STAPHYLOCOCCAL INFECTION [None]
  - VOMITING [None]
